FAERS Safety Report 16973128 (Version 1)
Quarter: 2019Q4

REPORT INFORMATION
  Report Type: Report from Study
  Country: CA (occurrence: CA)
  Receive Date: 20191030
  Receipt Date: 20191030
  Transmission Date: 20200122
  Serious: Yes (Hospitalization)
  Sender: FDA-Public Use
  Company Number: CA-ORION CORPORATION ORION PHARMA-TREX2019-4787

PATIENT
  Age: 52 Year
  Sex: Male

DRUGS (11)
  1. USTEKINUMAB [Concomitant]
     Active Substance: USTEKINUMAB
     Route: 065
  2. COSENTYX [Suspect]
     Active Substance: SECUKINUMAB
     Indication: PSORIATIC ARTHROPATHY
     Route: 058
  3. COSENTYX [Suspect]
     Active Substance: SECUKINUMAB
     Route: 058
  4. METHOTREXATE (TRADE NAME UNKNOWN) [Suspect]
     Active Substance: METHOTREXATE
     Indication: PRODUCT USED FOR UNKNOWN INDICATION
     Route: 065
  5. CICLOSPORIN [Suspect]
     Active Substance: CYCLOSPORINE
     Indication: PRODUCT USED FOR UNKNOWN INDICATION
     Route: 048
  6. COSENTYX [Suspect]
     Active Substance: SECUKINUMAB
     Route: 058
  7. HUMIRA [Concomitant]
     Active Substance: ADALIMUMAB
     Route: 058
  8. PREDNISONE. [Concomitant]
     Active Substance: PREDNISONE
     Route: 065
  9. COSENTYX [Suspect]
     Active Substance: SECUKINUMAB
     Route: 058
  10. COSENTYX [Suspect]
     Active Substance: SECUKINUMAB
     Route: 058
  11. ENBREL [Concomitant]
     Active Substance: ETANERCEPT
     Route: 065

REACTIONS (6)
  - Foot deformity [Unknown]
  - Localised infection [Unknown]
  - Therapeutic product effect incomplete [Unknown]
  - Product prescribing error [Unknown]
  - Peripheral swelling [Unknown]
  - Skin fissures [Unknown]
